FAERS Safety Report 11692726 (Version 1)
Quarter: 2015Q4

REPORT INFORMATION
  Report Type: Spontaneous
  Country: US (occurrence: US)
  Receive Date: 20151103
  Receipt Date: 20151103
  Transmission Date: 20160304
  Serious: No
  Sender: FDA-Public Use
  Company Number: US-ENDO PHARMACEUTICALS INC.-VANT20140031

PATIENT
  Age: 75 Year
  Sex: Male

DRUGS (3)
  1. VANTAS [Suspect]
     Active Substance: HISTRELIN ACETATE
     Route: 065
     Dates: start: 201311, end: 20141124
  2. VANTAS [Suspect]
     Active Substance: HISTRELIN ACETATE
     Indication: PRODUCT USED FOR UNKNOWN INDICATION
     Dosage: UNKNOWN
     Route: 065
     Dates: start: 201211, end: 20141124
  3. VANTAS [Suspect]
     Active Substance: HISTRELIN ACETATE
     Route: 065
     Dates: start: 20141124

REACTIONS (3)
  - Prostatic specific antigen increased [Not Recovered/Not Resolved]
  - Drug ineffective [Recovered/Resolved]
  - Incorrect drug administration duration [Recovered/Resolved]

NARRATIVE: CASE EVENT DATE: 2013
